FAERS Safety Report 5744775-8 (Version None)
Quarter: 2008Q2

REPORT INFORMATION
  Report Type: 
  Country: None (occurrence: None)
  Receive Date: 20080516
  Receipt Date: 20080507
  Transmission Date: 20081010
  Serious: Yes (Other)
  Sender: FDA-Public Use
  Company Number: 2008AP001154

PATIENT
  Age: 61 Year
  Sex: Male

DRUGS (3)
  1. CLOPIDOGREL [Suspect]
     Indication: CORONARY ARTERY DISEASE
  2. ACETYLSALICYLIC ACID SRT [Concomitant]
  3. EZETIMIBE [Concomitant]

REACTIONS (6)
  - BRONCHOSCOPY ABNORMAL [None]
  - HAEMOPTYSIS [None]
  - OEDEMA MUCOSAL [None]
  - PETECHIAE [None]
  - PULMONARY TOXICITY [None]
  - WHEEZING [None]
